FAERS Safety Report 5833279-X (Version None)
Quarter: 2008Q3

REPORT INFORMATION
  Report Type: 
  Country: None (occurrence: None)
  Receive Date: 20080804
  Receipt Date: 20080804
  Transmission Date: 20090109
  Serious: Yes (Other)
  Sender: FDA-Public Use
  Company Number: None

PATIENT
  Sex: Male
  Weight: 99.3377 kg

DRUGS (8)
  1. WARFARIN SODIUM [Suspect]
     Indication: ATRIAL FLUTTER
     Dosage: 10 MG QD P.O.
     Route: 048
     Dates: start: 20070604, end: 20070625
  2. LIPITOR [Concomitant]
  3. LASIX [Concomitant]
  4. JANUVIA [Concomitant]
  5. K DUR [Concomitant]
  6. COREG [Concomitant]
  7. LANOXIN [Concomitant]
  8. ZESTRIL [Concomitant]

REACTIONS (2)
  - INTERNATIONAL NORMALISED RATIO ABNORMAL [None]
  - NAUSEA [None]
